FAERS Safety Report 4642677-1 (Version None)
Quarter: 2005Q2

REPORT INFORMATION
  Report Type: 
  Country: None (occurrence: None)
  Receive Date: 20050422
  Receipt Date: 20050413
  Transmission Date: 20051028
  Serious: Yes (Hospitalization)
  Sender: FDA-Public Use
  Company Number: DE-JNJFOC-20050402933

PATIENT
  Age: 56 Year
  Sex: Female

DRUGS (2)
  1. CAELYX [Suspect]
     Indication: CERVIX CARCINOMA
     Route: 042
  2. MARCUMAR [Concomitant]
     Indication: THROMBOSIS PROPHYLAXIS

REACTIONS (9)
  - HAEMATOMA [None]
  - HAEMORRHAGE [None]
  - INTERNATIONAL NORMALISED RATIO INCREASED [None]
  - NECROSIS [None]
  - PAIN IN EXTREMITY [None]
  - PIGMENTATION DISORDER [None]
  - RASH VESICULAR [None]
  - SKIN NECROSIS [None]
  - TOE AMPUTATION [None]
